FAERS Safety Report 12721265 (Version 1)
Quarter: 2016Q3

REPORT INFORMATION
  Report Type: Spontaneous
  Country: BY (occurrence: BY)
  Receive Date: 20160907
  Receipt Date: 20160907
  Transmission Date: 20161109
  Serious: Yes (Life-Threatening)
  Sender: FDA-Public Use
  Company Number: BY-PFIZER INC-2016418247

PATIENT
  Sex: Female

DRUGS (1)
  1. PREPIDIL [Suspect]
     Active Substance: DINOPROSTONE
     Indication: LABOUR STIMULATION
     Dosage: UNK
     Route: 061
     Dates: start: 2015

REACTIONS (2)
  - Uterine inflammation [Unknown]
  - Uterine haemorrhage [Recovered/Resolved with Sequelae]

NARRATIVE: CASE EVENT DATE: 2015
